FAERS Safety Report 9049843 (Version 5)
Quarter: 2014Q2

REPORT INFORMATION
  Report Type: Spontaneous
  Country: US (occurrence: US)
  Receive Date: 20130205
  Receipt Date: 20140522
  Transmission Date: 20141212
  Serious: Yes (Hospitalization, Other)
  Sender: FDA-Public Use
  Company Number: US-009507513-1302USA000884

PATIENT
  Sex: Female

DRUGS (3)
  1. FOSAMAX [Suspect]
     Indication: OSTEOPOROSIS
     Dosage: 70 MG, QW
     Route: 048
     Dates: end: 201204
  2. ALENDRONATE SODIUM [Suspect]
     Indication: OSTEOPOROSIS
     Dosage: 70 MG, QW
     Dates: start: 2009, end: 201204
  3. VASOTEC [Concomitant]
     Indication: HYPERTENSION
     Dosage: 2.5 MG, QD

REACTIONS (17)
  - Intramedullary rod insertion [Unknown]
  - Breast cancer female [Unknown]
  - Knee arthroplasty [Unknown]
  - Femur fracture [Recovered/Resolved]
  - Low turnover osteopathy [Unknown]
  - Upper limb fracture [Unknown]
  - Scapula fracture [Recovered/Resolved]
  - Spinal osteoarthritis [Unknown]
  - Injury [Unknown]
  - Hypotension [Recovering/Resolving]
  - Osteoarthritis [Unknown]
  - Anxiety [Unknown]
  - Carotid bruit [Unknown]
  - Osteosclerosis [Unknown]
  - Bursitis [Unknown]
  - Hiatus hernia [Unknown]
  - Arthritis [Unknown]
